FAERS Safety Report 18383144 (Version 1)
Quarter: 2020Q4

REPORT INFORMATION
  Report Type: Spontaneous
  Country: US (occurrence: US)
  Receive Date: 20201014
  Receipt Date: 20201014
  Transmission Date: 20210114
  Serious: No
  Sender: FDA-Public Use
  Company Number: US-PFIZER INC-2020395786

PATIENT
  Age: 72 Year
  Sex: Male
  Weight: 97.52 kg

DRUGS (1)
  1. XANAX [Suspect]
     Active Substance: ALPRAZOLAM
     Indication: PAIN
     Dosage: UNK

REACTIONS (3)
  - Constipation [Unknown]
  - Off label use [Unknown]
  - Product use in unapproved indication [Unknown]
